FAERS Safety Report 7520012-9 (Version None)
Quarter: 2011Q2

REPORT INFORMATION
  Report Type: 
  Country: None (occurrence: None)
  Receive Date: 20110602
  Receipt Date: 20110520
  Transmission Date: 20111010
  Serious: Yes (Hospitalization)
  Sender: FDA-Public Use
  Company Number: PHHY2011US44370

PATIENT
  Sex: Male
  Weight: 105.9 kg

DRUGS (7)
  1. EXJADE [Suspect]
     Dosage: 500 MG, DAILY
     Route: 048
     Dates: start: 20080618
  2. DANAZOL [Concomitant]
     Dosage: 200 MG, TID
  3. GLIPIZIDE [Concomitant]
     Dosage: 5 MG, UNK
  4. CHLORTHALIDONE [Concomitant]
     Dosage: 25 MG, UNK
  5. JANUVIA [Concomitant]
     Dosage: 50 MG, UNK
  6. PREDNISOLONE [Concomitant]
     Dosage: 5 MG, UNK
  7. KLOR-CON [Concomitant]
     Dosage: 20 MEQ, UNK

REACTIONS (3)
  - TYPE 2 DIABETES MELLITUS [None]
  - TRANSIENT ISCHAEMIC ATTACK [None]
  - HYPERGLYCAEMIC HYPEROSMOLAR NONKETOTIC SYNDROME [None]
